FAERS Safety Report 15561916 (Version 1)
Quarter: 2018Q4

REPORT INFORMATION
  Report Type: Spontaneous
  Country: US (occurrence: US)
  Receive Date: 20181029
  Receipt Date: 20181029
  Transmission Date: 20190205
  Serious: Yes (Other)
  Sender: FDA-Public Use
  Company Number: None

PATIENT
  Age: 54 Year
  Sex: Female
  Weight: 72 kg

DRUGS (3)
  1. TIZANIDINE. [Concomitant]
     Active Substance: TIZANIDINE
  2. RYDAPT [Suspect]
     Active Substance: MIDOSTAURIN
     Indication: ILL-DEFINED DISORDER
     Route: 048
     Dates: start: 20180625
  3. FENTANYL. [Concomitant]
     Active Substance: FENTANYL

REACTIONS (2)
  - Peripheral swelling [None]
  - Diarrhoea [None]

NARRATIVE: CASE EVENT DATE: 20181029
